FAERS Safety Report 17483874 (Version 1)
Quarter: 2020Q1

REPORT INFORMATION
  Report Type: Spontaneous
  Country: US (occurrence: US)
  Receive Date: 20200219
  Receipt Date: 20200219
  Transmission Date: 20200409
  Serious: Yes (Disabling, Other)
  Sender: FDA-Public Use
  Company Number: None

PATIENT
  Age: 61 Year
  Sex: Male
  Weight: 88.9 kg

DRUGS (1)
  1. PLAQUENIL [Suspect]
     Active Substance: HYDROXYCHLOROQUINE SULFATE
     Indication: LICHEN PLANUS
     Dosage: ?          QUANTITY:90 PILLS;OTHER FREQUENCY:2X/DAY FOR ONE MON;?
     Route: 048
     Dates: start: 20190722, end: 20190919

REACTIONS (3)
  - Depression [None]
  - Contusion [None]
  - Pain [None]
